FAERS Safety Report 9495543 (Version 1)
Quarter: 2013Q3

REPORT INFORMATION
  Report Type: Spontaneous
  Country: US (occurrence: US)
  Receive Date: 20130903
  Receipt Date: 20130903
  Transmission Date: 20140515
  Serious: No
  Sender: FDA-Public Use
  Company Number: US-SANOFI-AVENTIS-2013SA070476

PATIENT
  Age: 4 Year
  Sex: Male
  Weight: 22 kg

DRUGS (1)
  1. ALLEGRA [Suspect]
     Route: 065

REACTIONS (1)
  - Extra dose administered [Unknown]
